FAERS Safety Report 5510907-X (Version None)
Quarter: 2007Q4

REPORT INFORMATION
  Report Type: 
  Country: None (occurrence: None)
  Receive Date: 20071107
  Receipt Date: 20071030
  Transmission Date: 20080405
  Serious: Yes (Hospitalization)
  Sender: FDA-Public Use
  Company Number: 2007RL000461

PATIENT
  Age: 70 Year
  Sex: Male
  Weight: 88.4514 kg

DRUGS (20)
  1. RYTHMOL [Suspect]
     Dosage: 225 MG;BID;PO; 325 MG;BID;PO
     Route: 048
     Dates: start: 20050101, end: 20070101
  2. RYTHMOL [Suspect]
     Dosage: 225 MG;BID;PO; 325 MG;BID;PO
     Route: 048
     Dates: start: 20070101
  3. POTASSIUM [Suspect]
     Indication: DRUG USE FOR UNKNOWN INDICATION
  4. MAGNESIUM                                                (MAGNESIUM) [Suspect]
     Indication: DRUG USE FOR UNKNOWN INDICATION
  5. RITAXIMAB [Suspect]
     Indication: LYMPHOMA
     Dates: start: 20070101
  6. IFOSFAMIDE [Suspect]
     Indication: LYMPHOMA
     Dates: start: 20070701
  7. CARBOPLATIN [Suspect]
     Indication: LYMPHOMA
     Dates: start: 20070701
  8. ETOPOSIDE [Suspect]
     Indication: LYMPHOMA
     Dates: start: 20070701
  9. CARDIA XT [Concomitant]
  10. BENICAR [Concomitant]
  11. ZOCOR [Concomitant]
  12. THYROID TAB [Concomitant]
  13. ASPIRIN [Concomitant]
  14. HYDROCHLOROTHIAZIDE [Concomitant]
  15. ACIPHEX [Concomitant]
  16. TERZOSIN [Concomitant]
  17. NIACIN [Concomitant]
  18. ULTRACHROME [Concomitant]
  19. BROMAX [Concomitant]
  20. ^HERBAL REMEDY^ [Concomitant]

REACTIONS (6)
  - DRUG INTERACTION [None]
  - DRY MOUTH [None]
  - HEART RATE IRREGULAR [None]
  - ILL-DEFINED DISORDER [None]
  - LYMPHOMA [None]
  - ORTHOPNOEA [None]
